FAERS Safety Report 5158768-5 (Version None)
Quarter: 2006Q4

REPORT INFORMATION
  Report Type: 
  Country: None (occurrence: None)
  Receive Date: 20061128
  Receipt Date: 20061031
  Transmission Date: 20070319
  Serious: Yes (Other)
  Sender: FDA-Public Use
  Company Number: 2006AC01990

PATIENT
  Age: 22916 Day
  Sex: Male

DRUGS (1)
  1. EMLA [Suspect]
     Indication: LOCAL ANAESTHESIA
     Route: 061
     Dates: start: 20060929, end: 20060929

REACTIONS (2)
  - APPLICATION SITE VESICLES [None]
  - PHIMOSIS [None]
